FAERS Safety Report 10093276 (Version 1)
Quarter: 2014Q2

REPORT INFORMATION
  Report Type: Spontaneous
  Country: US (occurrence: US)
  Receive Date: 20140421
  Receipt Date: 20140421
  Transmission Date: 20141212
  Serious: No
  Sender: FDA-Public Use
  Company Number: US-SA-2013SA123210

PATIENT
  Age: 68 Year
  Sex: Female

DRUGS (4)
  1. ALLEGRA [Suspect]
     Indication: DERMATITIS ALLERGIC
     Route: 048
  2. ALLEGRA [Suspect]
     Indication: SNEEZING
     Route: 048
  3. ALLEGRA [Suspect]
     Indication: HYPERSENSITIVITY
     Route: 048
  4. ATENOLOL [Concomitant]
     Indication: BLOOD PRESSURE

REACTIONS (1)
  - Arthropod bite [Not Recovered/Not Resolved]
